FAERS Safety Report 21923888 (Version 2)
Quarter: 2023Q2

REPORT INFORMATION
  Report Type: Spontaneous
  Country: DE (occurrence: DE)
  Receive Date: 20230130
  Receipt Date: 20230405
  Transmission Date: 20230722
  Serious: Yes (Congenital Anomaly, Other)
  Sender: FDA-Public Use
  Company Number: DE-TEVA-2023-DE-2847692

PATIENT
  Age: 1 Decade
  Sex: Male

DRUGS (3)
  1. ACYCLOVIR [Suspect]
     Active Substance: ACYCLOVIR
     Indication: Product used for unknown indication
     Dosage: DRUG DOSAGE: 400 MG/DAY, SOMETIMES 600 MG TO 800 MG/DAY
     Route: 064
  2. ACYCLOVIR [Suspect]
     Active Substance: ACYCLOVIR
     Dosage: DRUG DOSAGE: 400 MG/DAY, SOMETIMES 600 MG TO 800 MG/DAY
     Route: 063
  3. ACYCLOVIR [Suspect]
     Active Substance: ACYCLOVIR
     Dosage: EVERY THREE WEEKS, 200 MG IN THE MORNING AND IN THE EVENING
     Route: 064

REACTIONS (7)
  - Mutagenic effect [Unknown]
  - Mastocytosis [Unknown]
  - Histamine intolerance [Unknown]
  - Urticaria [Unknown]
  - Abdominal pain [Unknown]
  - Foetal exposure during pregnancy [Unknown]
  - Exposure via breast milk [Unknown]
